FAERS Safety Report 15172827 (Version 1)
Quarter: 2018Q3

REPORT INFORMATION
  Report Type: Spontaneous
  Country: US (occurrence: US)
  Receive Date: 20180720
  Receipt Date: 20180720
  Transmission Date: 20181010
  Serious: No
  Sender: FDA-Public Use
  Company Number: US-ROCHE-2082495

PATIENT
  Sex: Female
  Weight: 90.8 kg

DRUGS (3)
  1. PERJETA [Suspect]
     Active Substance: PERTUZUMAB
     Indication: BREAST CANCER
     Dosage: DUE FOR ROUND 3 TOMORROW, 27?FEB?2018
     Route: 042
     Dates: start: 20180116
  2. HERCEPTIN [Suspect]
     Active Substance: TRASTUZUMAB
     Indication: BREAST CANCER
     Dosage: DUE FOR ROUND 3 TOMORROW, 27?FEB?2018
     Route: 042
     Dates: start: 20180116
  3. DOCETAXEL. [Suspect]
     Active Substance: DOCETAXEL
     Indication: BREAST CANCER
     Dosage: DUE FOR ROUND 3 TOMORROW, 27?FEB?2018
     Route: 042
     Dates: start: 20180116

REACTIONS (1)
  - Alopecia [Not Recovered/Not Resolved]
